FAERS Safety Report 7759490-9 (Version None)
Quarter: 2011Q3

REPORT INFORMATION
  Report Type: 
  Country: None (occurrence: None)
  Receive Date: 20110919
  Receipt Date: 20110919
  Transmission Date: 20111222
  Serious: No
  Sender: FDA-Public Use
  Company Number: None

PATIENT
  Age: 8 Year
  Sex: Male
  Weight: 31.297 kg

DRUGS (2)
  1. SINGULAIR [Suspect]
     Indication: NASAL CONGESTION
     Dosage: 1 TABLET
     Dates: start: 20110805, end: 20110915
  2. SINGULAIR [Suspect]
     Indication: MULTIPLE ALLERGIES
     Dosage: 1 TABLET
     Dates: start: 20110805, end: 20110915

REACTIONS (3)
  - FEAR OF DEATH [None]
  - PANIC ATTACK [None]
  - NIGHTMARE [None]
